FAERS Safety Report 9215955 (Version 4)
Quarter: 2013Q4

REPORT INFORMATION
  Report Type: Spontaneous
  Country: US (occurrence: None)
  Receive Date: 20130406
  Receipt Date: 20131029
  Transmission Date: 20140711
  Serious: Yes (Hospitalization, Other)
  Sender: FDA-Public Use
  Company Number: AUR-APL-2012-02319

PATIENT
  Age: 65 Year
  Sex: Female
  Weight: 70 kg

DRUGS (11)
  1. MELOXICAM [Suspect]
     Indication: ARTHRITIS
     Dosage: (50 MG,1 D)
     Dates: start: 2011
  2. CELEBREX [Suspect]
     Indication: OSTEOARTHRITIS
     Dosage: (200 MG,1 D)
  3. CELEBREX [Suspect]
     Indication: BACK PAIN
     Dosage: (200 MG,1 D)
  4. CELEBREX [Suspect]
     Indication: ARTHRALGIA
     Dosage: (200 MG,1 D)
  5. CLONIDINE (CLONIDINE) [Concomitant]
  6. ATENOLOL (ATENOLOL) [Concomitant]
  7. LISINOPRIL (LISINOPRIL) [Concomitant]
  8. XANAX (ALPRAZOLAM) [Concomitant]
  9. SYNTHROID (LEVOTHYROXINE SODIUM) [Concomitant]
  10. PREMARIN (ESTROGENS CONJUGATED) [Concomitant]
  11. MEDROXYPROGESTERONE (MEDROXYPROGESTERONE) [Concomitant]

REACTIONS (12)
  - Pain [None]
  - Nerve compression [None]
  - Drug ineffective [None]
  - Bladder prolapse [None]
  - Urethral prolapse [None]
  - Drug dose omission [None]
  - Arthralgia [None]
  - Joint swelling [None]
  - Neck pain [None]
  - Local swelling [None]
  - Back pain [None]
  - Sciatica [None]
